FAERS Safety Report 19840435 (Version 1)
Quarter: 2021Q3

REPORT INFORMATION
  Report Type: Report from Study
  Country: CN (occurrence: CN)
  Receive Date: 20210916
  Receipt Date: 20210916
  Transmission Date: 20211014
  Serious: Yes (Hospitalization)
  Sender: FDA-Public Use
  Company Number: CN-ASTRAZENECA-2021A723993

PATIENT
  Age: 25541 Day
  Sex: Male

DRUGS (39)
  1. GLUCOSE AND SODIUM CHLORIDE POTASSIUM CHLORIDE INJECTION [Concomitant]
     Indication: OEDEMA
     Route: 042
     Dates: start: 20210805, end: 20210809
  2. LANSOPRAZOLE FOR INJECTION [Concomitant]
     Indication: PROPHYLAXIS OF NAUSEA AND VOMITING
     Route: 042
     Dates: start: 20210826, end: 20210830
  3. DURVALUMAB. [Suspect]
     Active Substance: DURVALUMAB
     Indication: NON-SMALL CELL LUNG CANCER
     Route: 042
     Dates: start: 20210618, end: 20210618
  4. DURVALUMAB. [Suspect]
     Active Substance: DURVALUMAB
     Indication: NON-SMALL CELL LUNG CANCER
     Route: 042
     Dates: start: 20210709, end: 20210709
  5. CISPLATIN. [Suspect]
     Active Substance: CISPLATIN
     Indication: NON-SMALL CELL LUNG CANCER
     Dosage: 75 MG/M2 EVERY THREE WEEKS
     Route: 042
     Dates: start: 20210618, end: 20210618
  6. CISPLATIN. [Suspect]
     Active Substance: CISPLATIN
     Indication: NON-SMALL CELL LUNG CANCER
     Dosage: 75 MG/M2 EVERY THREE WEEKS
     Route: 042
     Dates: start: 20210806, end: 20210806
  7. GEMCITABINE. [Suspect]
     Active Substance: GEMCITABINE
     Indication: NON-SMALL CELL LUNG CANCER
     Dosage: 1250 MG/M2
     Route: 042
     Dates: start: 20210709, end: 20210709
  8. GEMCITABINE. [Suspect]
     Active Substance: GEMCITABINE
     Indication: NON-SMALL CELL LUNG CANCER
     Dosage: 1250 MG/M2
     Route: 042
     Dates: start: 20210716, end: 20210716
  9. VITAMIN B6 [Concomitant]
     Active Substance: PYRIDOXINE HYDROCHLORIDE
     Indication: OEDEMA
     Route: 042
     Dates: start: 20210826, end: 20210830
  10. LANSOPRAZOLE FOR INJECTION [Concomitant]
     Indication: ABDOMINAL PAIN UPPER
     Route: 042
     Dates: start: 20210805, end: 20210809
  11. LANSOPRAZOLE FOR INJECTION [Concomitant]
     Indication: ABDOMINAL PAIN UPPER
     Route: 042
     Dates: start: 20210826, end: 20210830
  12. PALONOSETRON HYDROCHLORIDE INJECTION [Concomitant]
     Active Substance: PALONOSETRON HYDROCHLORIDE
     Indication: PROPHYLAXIS OF NAUSEA AND VOMITING
     Dosage: 5.0ML ONCE/SINGLE ADMINISTRATION
     Route: 051
     Dates: start: 20210806, end: 20210806
  13. GEMCITABINE. [Suspect]
     Active Substance: GEMCITABINE
     Indication: NON-SMALL CELL LUNG CANCER
     Dosage: 1250 MG/M2
     Route: 042
     Dates: start: 20210618, end: 20210618
  14. LANSOPRAZOLE FOR INJECTION [Concomitant]
     Indication: STOMA CARE
     Route: 051
     Dates: start: 20210827, end: 20210829
  15. LANSOPRAZOLE FOR INJECTION [Concomitant]
     Indication: PROPHYLAXIS OF NAUSEA AND VOMITING
     Route: 042
     Dates: start: 20210805, end: 20210809
  16. LANSOPRAZOLE FOR INJECTION [Concomitant]
     Indication: STOMA CARE
     Route: 042
     Dates: start: 20210826, end: 20210830
  17. ONDANSETRON HYDROCHLORIDE INJECTION [Concomitant]
     Indication: PROPHYLAXIS OF NAUSEA AND VOMITING
     Route: 042
     Dates: start: 20210827, end: 20210827
  18. DURVALUMAB. [Suspect]
     Active Substance: DURVALUMAB
     Indication: NON-SMALL CELL LUNG CANCER
     Route: 042
     Dates: start: 20210806, end: 20210806
  19. CISPLATIN. [Suspect]
     Active Substance: CISPLATIN
     Indication: NON-SMALL CELL LUNG CANCER
     Dosage: 75 MG/M2 EVERY THREE WEEKS
     Route: 042
     Dates: start: 20210710, end: 20210710
  20. CISPLATIN. [Suspect]
     Active Substance: CISPLATIN
     Indication: NON-SMALL CELL LUNG CANCER
     Dosage: 75 MG/M2 EVERY THREE WEEKS
     Route: 042
     Dates: start: 20210711, end: 20210711
  21. GLUCOSE AND SODIUM CHLORIDE POTASSIUM CHLORIDE INJECTION [Concomitant]
     Indication: OEDEMA
     Route: 042
     Dates: start: 20210826, end: 20210829
  22. VITAMIN B6 [Concomitant]
     Active Substance: PYRIDOXINE HYDROCHLORIDE
     Indication: OEDEMA
     Route: 042
     Dates: start: 20210805, end: 20210809
  23. LANSOPRAZOLE FOR INJECTION [Concomitant]
     Indication: ABDOMINAL PAIN UPPER
     Route: 051
     Dates: start: 20210827, end: 20210829
  24. RECOMBINANT HUMAN GRANULOCYTE COLONY STIMULATING FACTOR INJECTION [Concomitant]
     Indication: MYELOSUPPRESSION
     Dosage: 400.0UG/INHAL ONCE/SINGLE ADMINISTRATION
     Route: 058
     Dates: start: 20210823, end: 20210823
  25. RECOMBINANT HUMAN GRANULOCYTE COLONY STIMULATING FACTOR INJECTION [Concomitant]
     Indication: WHITE BLOOD CELL COUNT DECREASED
     Dosage: 400.0UG/INHAL ONCE/SINGLE ADMINISTRATION
     Route: 058
     Dates: start: 20210823, end: 20210823
  26. ONDANSETRON HYDROCHLORIDE INJECTION [Concomitant]
     Indication: PROPHYLAXIS OF NAUSEA AND VOMITING
     Route: 042
     Dates: start: 20210813, end: 20210813
  27. FUROSEMIDE INJECTION [Concomitant]
     Active Substance: FUROSEMIDE
     Indication: PROPHYLAXIS OF NAUSEA AND VOMITING
     Route: 051
     Dates: start: 20210806, end: 20210808
  28. GEMCITABINE. [Suspect]
     Active Substance: GEMCITABINE
     Indication: NON-SMALL CELL LUNG CANCER
     Dosage: 1250 MG/M2
     Route: 042
     Dates: start: 20210806, end: 20210806
  29. COMPOUND SODIUM CHLORIDE INJECTION [Concomitant]
     Active Substance: SODIUM CHLORIDE
     Indication: OEDEMA
     Route: 042
     Dates: start: 20210806, end: 20210809
  30. LANSOPRAZOLE FOR INJECTION [Concomitant]
     Indication: ABDOMINAL PAIN UPPER
     Route: 042
     Dates: start: 20210813, end: 20210813
  31. LANSOPRAZOLE FOR INJECTION [Concomitant]
     Indication: PROPHYLAXIS OF NAUSEA AND VOMITING
     Route: 042
     Dates: start: 20210813, end: 20210813
  32. LANSOPRAZOLE FOR INJECTION [Concomitant]
     Indication: PROPHYLAXIS OF NAUSEA AND VOMITING
     Route: 051
     Dates: start: 20210827, end: 20210829
  33. CISPLATIN. [Suspect]
     Active Substance: CISPLATIN
     Indication: NON-SMALL CELL LUNG CANCER
     Dosage: 75 MG/M2 EVERY THREE WEEKS
     Route: 042
     Dates: start: 20210709, end: 20210709
  34. COMPOUND SODIUM CHLORIDE INJECTION [Concomitant]
     Active Substance: SODIUM CHLORIDE
     Indication: OEDEMA
     Route: 042
     Dates: start: 20210827, end: 20210830
  35. LANSOPRAZOLE FOR INJECTION [Concomitant]
     Indication: STOMA CARE
     Route: 042
     Dates: start: 20210805, end: 20210809
  36. LANSOPRAZOLE FOR INJECTION [Concomitant]
     Indication: STOMA CARE
     Route: 042
     Dates: start: 20210813, end: 20210813
  37. ONDANSETRON HYDROCHLORIDE INJECTION [Concomitant]
     Indication: PROPHYLAXIS OF NAUSEA AND VOMITING
     Route: 042
     Dates: start: 20210805, end: 20210806
  38. ONDANSETRON HYDROCHLORIDE INJECTION [Concomitant]
     Indication: PROPHYLAXIS OF NAUSEA AND VOMITING
     Route: 042
     Dates: start: 20210826, end: 20210827
  39. PALONOSETRON HYDROCHLORIDE INJECTION [Concomitant]
     Active Substance: PALONOSETRON HYDROCHLORIDE
     Indication: INJECTION
     Dosage: 5.0ML ONCE/SINGLE ADMINISTRATION
     Route: 051
     Dates: start: 20210806, end: 20210806

REACTIONS (1)
  - White blood cell count decreased [Recovered/Resolved]

NARRATIVE: CASE EVENT DATE: 20210902
